FAERS Safety Report 20482631 (Version 1)
Quarter: 2022Q1

REPORT INFORMATION
  Report Type: Spontaneous
  Country: US (occurrence: US)
  Receive Date: 20220217
  Receipt Date: 20220217
  Transmission Date: 20220424
  Serious: No
  Sender: FDA-Public Use
  Company Number: US-UNITED THERAPEUTICS-UNT-2022-003405

PATIENT
  Age: 24 Month
  Sex: Female

DRUGS (1)
  1. REMODULIN [Suspect]
     Active Substance: TREPROSTINIL
     Indication: Product used for unknown indication
     Dosage: UNK UNK, CONTINUING
     Route: 058
     Dates: start: 2021

REACTIONS (3)
  - Infusion site rash [Unknown]
  - Infusion site cellulitis [Unknown]
  - Infusion site urticaria [Unknown]
